FAERS Safety Report 9900279 (Version 2)
Quarter: 2015Q1

REPORT INFORMATION
  Report Type: Spontaneous
  Country: CA (occurrence: CA)
  Receive Date: 20140215
  Receipt Date: 20140215
  Transmission Date: 20150721
  Serious: Yes (Death, Other)
  Sender: FDA-Public Use
  Company Number: CA-ASTRAZENECA-2014SE10510

PATIENT
  Sex: Male

DRUGS (2)
  1. SLEEPING PILLS [Concomitant]
     Active Substance: UNSPECIFIED INGREDIENT
  2. SEROQUEL [Suspect]
     Active Substance: QUETIAPINE FUMARATE
     Route: 048

REACTIONS (5)
  - Aggression [Unknown]
  - Sedation [Unknown]
  - Death [Fatal]
  - Intentional product misuse [Unknown]
  - Confusional state [Unknown]
